FAERS Safety Report 6247946-X (Version None)
Quarter: 2009Q2

REPORT INFORMATION
  Report Type: 
  Country: None (occurrence: None)
  Receive Date: 20090626
  Receipt Date: 20090625
  Transmission Date: 20091009
  Serious: Yes (Other)
  Sender: FDA-Public Use
  Company Number: JP-B.I. PHARMACEUTICALS,INC./RIDGEFIELD-2009-BP-07735NB

PATIENT
  Age: 6 Decade
  Sex: Female

DRUGS (2)
  1. MICARDIS [Suspect]
     Dosage: 20 MG
     Route: 048
  2. LASIX [Concomitant]
     Indication: CARDIAC VALVE DISEASE
     Route: 048

REACTIONS (1)
  - WHITE BLOOD CELL COUNT DECREASED [None]
